FAERS Safety Report 9777982 (Version 1)
Quarter: 2013Q4

REPORT INFORMATION
  Report Type: Spontaneous
  Country: AU (occurrence: AU)
  Receive Date: 20131223
  Receipt Date: 20131223
  Transmission Date: 20140711
  Serious: Yes (Life-Threatening)
  Sender: FDA-Public Use
  Company Number: AU-MERCK-1312AUS006754

PATIENT
  Age: 53 Year
  Sex: Male
  Weight: 90 kg

DRUGS (4)
  1. ROCURONIUM BROMIDE [Suspect]
     Dosage: 40 MG, UNK
     Route: 042
     Dates: start: 20131009
  2. PROPOFOL [Suspect]
     Dosage: UNK
     Dates: start: 20131009, end: 20131009
  3. MIDAZOLAM [Suspect]
     Dosage: 2 MG, UNK
     Dates: start: 20131009, end: 20131009
  4. FENTANYL [Suspect]
     Dosage: 100 MG, UNK
     Dates: start: 20131009, end: 20131009

REACTIONS (4)
  - Hypoxia [Recovered/Resolved]
  - Tachycardia [Recovered/Resolved]
  - Blood pressure systolic decreased [Recovered/Resolved]
  - Anaphylactic reaction [Recovered/Resolved]
